FAERS Safety Report 18500572 (Version 9)
Quarter: 2023Q2

REPORT INFORMATION
  Report Type: Report from Study
  Country: US (occurrence: US)
  Receive Date: 20201113
  Receipt Date: 20230629
  Transmission Date: 20230722
  Serious: Yes (Hospitalization)
  Sender: FDA-Public Use
  Company Number: US-TAKEDA-US202034579

PATIENT
  Sex: Male
  Weight: 26 kg

DRUGS (9)
  1. HUMAN IMMUNOGLOBULIN G [Suspect]
     Active Substance: HUMAN IMMUNOGLOBULIN G
     Indication: Immunodeficiency common variable
     Dosage: 8 GRAM, Q2WEEKS
     Route: 058
     Dates: start: 20170811
  2. HUMAN IMMUNOGLOBULIN G [Suspect]
     Active Substance: HUMAN IMMUNOGLOBULIN G
     Dosage: 8 GRAM, Q2WEEKS
     Route: 058
     Dates: start: 20171107
  3. HUMAN IMMUNOGLOBULIN G [Suspect]
     Active Substance: HUMAN IMMUNOGLOBULIN G
     Dosage: 10 GRAM, Q2WEEKS
     Route: 058
  4. HUMAN IMMUNOGLOBULIN G [Suspect]
     Active Substance: HUMAN IMMUNOGLOBULIN G
     Dosage: 10 GRAM, Q2WEEKS
     Route: 058
     Dates: start: 20171108
  5. ACETAMINOPHEN [Concomitant]
     Active Substance: ACETAMINOPHEN
     Route: 065
  6. DIPHENHYDRAMINE [Concomitant]
     Active Substance: DIPHENHYDRAMINE
  7. EPINEPHRINE [Concomitant]
     Active Substance: EPINEPHRINE
     Route: 065
  8. Lmx [Concomitant]
     Dosage: UNK
     Route: 065
  9. PHILLIPS FIBER GUMMIES [Concomitant]
     Route: 065

REACTIONS (11)
  - COVID-19 [Unknown]
  - Eye infection [Unknown]
  - Superficial injury of eye [Unknown]
  - Staphylococcal skin infection [Unknown]
  - Sinusitis [Recovering/Resolving]
  - Sinus disorder [Unknown]
  - Nasopharyngitis [Unknown]
  - Ear infection [Unknown]
  - Upper respiratory tract infection [Unknown]
  - Illness [Unknown]
  - Inappropriate schedule of product administration [Unknown]
